FAERS Safety Report 7083940-7 (Version None)
Quarter: 2010Q4

REPORT INFORMATION
  Report Type: 
  Country: None (occurrence: None)
  Receive Date: 20101104
  Receipt Date: 20100419
  Transmission Date: 20110411
  Serious: No
  Sender: FDA-Public Use
  Company Number: US-ABBOTT-10P-163-0631823-00

PATIENT
  Sex: Male
  Weight: 90.8 kg

DRUGS (7)
  1. KALETRA [Suspect]
     Indication: HIV INFECTION
     Dosage: 2 PILLS IN THE MORNING AND 2 2 PILLS AM/ 2 PILLS PM
  2. EPICOCOME [Concomitant]
     Indication: HIV INFECTION
     Dates: start: 20080901
  3. ATENOLOL [Concomitant]
     Indication: BLOOD PRESSURE
  4. LISINOPRIL [Concomitant]
     Indication: BLOOD PRESSURE
  5. LEXAPRO [Concomitant]
     Indication: DEPRESSION
  6. ACETAMINOPHEN [Concomitant]
     Indication: PAIN
  7. ASPIRIN [Concomitant]
     Indication: PAIN

REACTIONS (2)
  - ABDOMINAL DISCOMFORT [None]
  - DIARRHOEA [None]
